FAERS Safety Report 4652932-7 (Version None)
Quarter: 2005Q3

REPORT INFORMATION
  Report Type: 
  Country: None (occurrence: None)
  Receive Date: 20050503
  Receipt Date: 20050421
  Transmission Date: 20060218
  Serious: Yes (Hospitalization)
  Sender: FDA-Public Use
  Company Number: US-2005-004621

PATIENT
  Age: 64 Year
  Sex: Male

DRUGS (1)
  1. BETASERON [Suspect]
     Indication: SECONDARY PROGRESSIVE MULTIPLE SCLEROSIS
     Dosage: 8 MIU, EVERY 2D, SUBCUTANEOUS
     Route: 058
     Dates: start: 20001015

REACTIONS (5)
  - BALANCE DISORDER [None]
  - CONDITION AGGRAVATED [None]
  - DYSSTASIA [None]
  - FALL [None]
  - MULTIPLE SCLEROSIS [None]
